FAERS Safety Report 8383663-8 (Version None)
Quarter: 2012Q2

REPORT INFORMATION
  Report Type: 
  Country: None (occurrence: None)
  Receive Date: 20120524
  Receipt Date: 20120514
  Transmission Date: 20120825
  Serious: Yes (Other)
  Sender: FDA-Public Use
  Company Number: FR-TEVA-339476ISR

PATIENT
  Sex: Female

DRUGS (6)
  1. FLUOXETINE [Concomitant]
  2. ACTIQ [Suspect]
     Indication: ANKYLOSING SPONDYLITIS
  3. ACETAMINOPHEN [Concomitant]
  4. IBUPROFEN [Concomitant]
  5. LANSOPRAZOLE [Concomitant]
  6. SPASFON NOS (PHLOROGLUCINOL/TRIMETHYLPHOROGLUCINOL) [Concomitant]

REACTIONS (3)
  - DRUG DEPENDENCE [None]
  - OFF LABEL USE [None]
  - OVERDOSE [None]
